FAERS Safety Report 5926717-5 (Version None)
Quarter: 2008Q4

REPORT INFORMATION
  Report Type: 
  Country: None (occurrence: None)
  Receive Date: 20081022
  Receipt Date: 20081022
  Transmission Date: 20090506
  Serious: Yes (Other)
  Sender: FDA-Public Use
  Company Number: PHHO2001BR06624

PATIENT
  Sex: Female
  Weight: 78.7 kg

DRUGS (1)
  1. SANDOSTATIN LAR [Suspect]
     Dosage: 30 MG
     Route: 030
     Dates: start: 20001113, end: 20010808

REACTIONS (4)
  - CHOLELITHIASIS [None]
  - CONDITION AGGRAVATED [None]
  - DISEASE PROGRESSION [None]
  - NAUSEA [None]
